FAERS Safety Report 7579530-X (Version None)
Quarter: 2011Q2

REPORT INFORMATION
  Report Type: 
  Country: None (occurrence: None)
  Receive Date: 20110629
  Receipt Date: 20110616
  Transmission Date: 20111010
  Serious: Yes (Other)
  Sender: FDA-Public Use
  Company Number: US-BAYER-2011-037626

PATIENT
  Age: 55 Year
  Sex: Female
  Weight: 55.8 kg

DRUGS (5)
  1. TOPIRAMATE [Concomitant]
     Indication: CONVULSION PROPHYLAXIS
     Dosage: UNK
  2. IBUPROFEN [Concomitant]
  3. BETAFERON [Suspect]
     Indication: MULTIPLE SCLEROSIS
     Dosage: 6 MIU, QOD
     Route: 058
     Dates: start: 20110330, end: 20110430
  4. LORAZEPAM [Concomitant]
     Dosage: UNK UNK, PRN
  5. ACETAMINOPHEN [Concomitant]

REACTIONS (4)
  - FEELING ABNORMAL [None]
  - DIZZINESS [None]
  - BLOOD PRESSURE INCREASED [None]
  - BLOOD PRESSURE DIASTOLIC INCREASED [None]
